FAERS Safety Report 17549701 (Version 1)
Quarter: 2020Q1

REPORT INFORMATION
  Report Type: Spontaneous
  Country: US (occurrence: US)
  Receive Date: 20200308
  Receipt Date: 20200308
  Transmission Date: 20200409
  Serious: Yes (Hospitalization)
  Sender: FDA-Public Use
  Company Number: None

PATIENT
  Age: 65 Year
  Sex: Male
  Weight: 100 kg

DRUGS (1)
  1. OLAPARIB (AZD2281) [Suspect]
     Active Substance: OLAPARIB
     Dates: end: 20200228

REACTIONS (3)
  - Sepsis [None]
  - Pneumonia [None]
  - Fatigue [None]

NARRATIVE: CASE EVENT DATE: 20200229
